FAERS Safety Report 23897627 (Version 1)
Quarter: 2024Q2

REPORT INFORMATION
  Report Type: Spontaneous
  Country: FR (occurrence: FR)
  Receive Date: 20240524
  Receipt Date: 20240524
  Transmission Date: 20240715
  Serious: Yes (Hospitalization)
  Sender: FDA-Public Use
  Company Number: None

PATIENT
  Age: 1 Day
  Sex: Female
  Weight: 3.46 kg

DRUGS (3)
  1. NEURONTIN [Suspect]
     Active Substance: GABAPENTIN
     Indication: Neuropathy peripheral
     Dosage: 2400 MILLIGRAM, QD (2 TO 3 TABLETS/DAY)
     Route: 064
     Dates: start: 20230625, end: 20240304
  2. AMITRIPTYLINE HYDROCHLORIDE [Suspect]
     Active Substance: AMITRIPTYLINE HYDROCHLORIDE
     Indication: Neuropathy peripheral
     Dosage: 40 MG/ML 10 TO 12 DROPS/DAY
     Route: 064
     Dates: start: 20230625, end: 20240304
  3. DOXYLAMINE SUCCINATE\PYRIDOXINE HYDROCHLORIDE [Suspect]
     Active Substance: DOXYLAMINE SUCCINATE\PYRIDOXINE HYDROCHLORIDE
     Indication: Morning sickness
     Dosage: 10 MG/10MG 4 CAPSULES/DAY DURING 18 TO 20 WEEKS THEN 2 CAPSULES/DAY FOR THE REST OF THE PREGNANCY
     Route: 064
     Dates: start: 20231017, end: 20240304

REACTIONS (2)
  - Withdrawal syndrome [Recovered/Resolved]
  - Foetal exposure during pregnancy [Recovered/Resolved]

NARRATIVE: CASE EVENT DATE: 20230625
